FAERS Safety Report 9624894 (Version 1)
Quarter: 2013Q4

REPORT INFORMATION
  Report Type: Spontaneous
  Country: US (occurrence: US)
  Receive Date: 20131016
  Receipt Date: 20131016
  Transmission Date: 20140711
  Serious: Yes (Hospitalization)
  Sender: FDA-Public Use
  Company Number: GXBR2013US001795

PATIENT
  Age: 60 Year
  Sex: Female
  Weight: 156.46 kg

DRUGS (14)
  1. NITROFURANTOIN CAPSULES USP [Suspect]
     Indication: URINARY TRACT INFECTION
     Dosage: 100 MG, BID
     Route: 048
     Dates: start: 20120602, end: 20120612
  2. VERAPAMIL [Concomitant]
     Indication: HYPERTENSION
     Dosage: UNK DF, UNK
  3. GABAPENTIN [Concomitant]
     Indication: NEUROPATHY PERIPHERAL
     Dosage: UNK DF, UNK
  4. PAXIL//PAROXETINE HYDROCHLORIDE [Concomitant]
     Indication: DEPRESSION
     Dosage: UNK DF, UNK
  5. BUPROPION [Concomitant]
     Indication: DEPRESSION
     Dosage: UNK DF, UNK
  6. LEVOTHYROXINE [Concomitant]
     Indication: HYPOTHYROIDISM
     Dosage: UNK DF, UNK
  7. LASIX [Concomitant]
     Dosage: 40 MG, UNK
  8. ASPIRIN [Concomitant]
     Indication: PROPHYLAXIS
     Dosage: UNK DF, UNK
  9. KLOR CON [Concomitant]
     Indication: SUPPLEMENTATION THERAPY
     Dosage: UNK DF, UNK
  10. NORCO [Concomitant]
     Indication: NEURALGIA
     Dosage: UNK DF, UNK
  11. XANAX [Concomitant]
     Indication: ANXIETY
     Dosage: UNK DF, UNK
  12. LANTUS [Concomitant]
     Indication: DIABETES MELLITUS
     Dosage: UNK DF, UNK
  13. NOVOLOG [Concomitant]
     Indication: DIABETES MELLITUS
     Dosage: UNK DF, UNK
  14. VICTOZA [Concomitant]
     Indication: DIABETES MELLITUS
     Dosage: UNK DF, UNK
     Dates: start: 201309

REACTIONS (8)
  - Pulmonary haemorrhage [Recovered/Resolved]
  - Wheezing [Recovered/Resolved]
  - Cough [Recovered/Resolved]
  - Fatigue [Recovered/Resolved]
  - Muscular weakness [Recovering/Resolving]
  - Abasia [Recovering/Resolving]
  - Dyspnoea [Recovering/Resolving]
  - Amnesia [Not Recovered/Not Resolved]
